FAERS Safety Report 24011378 (Version 1)
Quarter: 2024Q2

REPORT INFORMATION
  Report Type: Spontaneous
  Country: RS (occurrence: RS)
  Receive Date: 20240625
  Receipt Date: 20240625
  Transmission Date: 20240716
  Serious: Yes (Death, Life-Threatening, Hospitalization, Other)
  Sender: FDA-Public Use
  Company Number: RS-BAXTER-2024BAX020302

PATIENT
  Age: 61 Year
  Sex: Female
  Weight: 61 kg

DRUGS (12)
  1. DOXORUBICIN [Suspect]
     Active Substance: DOXORUBICIN
     Indication: Diffuse large B-cell lymphoma
     Dosage: UNK, AS A PART OF R-CHOP REGIMEN, DOSAGE FORM: INTRAVENOUS
     Route: 042
     Dates: start: 20221117
  2. DOXORUBICIN [Suspect]
     Active Substance: DOXORUBICIN
     Dosage: UNK, AS A PART OF R-CHOP REGIMEN, LAST DOSE PRIOR TO THE SAE
     Route: 065
     Dates: start: 20230308, end: 20230308
  3. CYCLOPHOSPHAMIDE [Suspect]
     Active Substance: CYCLOPHOSPHAMIDE
     Indication: Diffuse large B-cell lymphoma
     Dosage: UNK, AS A PART OF R-CHOP REGIMEN, DOSAGE FORM: INFUSION
     Route: 042
     Dates: start: 20221117
  4. CYCLOPHOSPHAMIDE [Suspect]
     Active Substance: CYCLOPHOSPHAMIDE
     Dosage: UNK, AS A PART OF R-CHOP REGIMEN, LAST DOSE PRIOR TO THE SAE
     Route: 065
     Dates: start: 20230308, end: 20230308
  5. RITUXIMAB [Suspect]
     Active Substance: RITUXIMAB
     Indication: Diffuse large B-cell lymphoma
     Dosage: UNK, AS A PART OF R-CHOP REGIMEN, DOSAGE FORM: INFUSION
     Route: 042
     Dates: start: 20221117
  6. RITUXIMAB [Suspect]
     Active Substance: RITUXIMAB
     Dosage: UNK, AS A PART OF R-CHOP REGIMEN, LAST DOSE PRIOR TO THE SAE
     Route: 065
     Dates: start: 20230308, end: 20230308
  7. VINCRISTINE [Suspect]
     Active Substance: VINCRISTINE
     Indication: Diffuse large B-cell lymphoma
     Dosage: UNK, AS A PART OF R-CHOP REGIMEN, DOSAGE FORM: INTRAVENOUS
     Route: 042
     Dates: start: 20221117
  8. VINCRISTINE [Suspect]
     Active Substance: VINCRISTINE
     Dosage: UNK, AS A PART OF R-CHOP REGIMEN, LAST DOSE PRIOR TO THE SAE
     Route: 065
     Dates: start: 20230308, end: 20230308
  9. PREDNISOLONE [Suspect]
     Active Substance: PREDNISOLONE
     Indication: Diffuse large B-cell lymphoma
     Dosage: UNK MILLIGRAM/SQ.METER, AS A PART OF R-CHOP REGIMEN, DOSAGE FORM: INTRAVENOUS
     Route: 042
     Dates: start: 20221117
  10. PREDNISOLONE [Suspect]
     Active Substance: PREDNISOLONE
     Dosage: UNK, AS A PART OF R-CHOP REGIMEN, LAST DOSE PRIOR TO THE SAE
     Route: 042
     Dates: start: 20230308, end: 20230308
  11. LISINOPRIL [Concomitant]
     Active Substance: LISINOPRIL
     Dosage: UNK, ONGOING
     Route: 065
     Dates: start: 20171001
  12. METFORMIN [Concomitant]
     Active Substance: METFORMIN HYDROCHLORIDE
     Dosage: UNK, ONGOING
     Route: 065
     Dates: start: 20221221

REACTIONS (2)
  - Septic shock [Fatal]
  - COVID-19 [Unknown]

NARRATIVE: CASE EVENT DATE: 20230201
